FAERS Safety Report 24687407 (Version 1)
Quarter: 2024Q4

REPORT INFORMATION
  Report Type: Spontaneous
  Country: MA (occurrence: MA)
  Receive Date: 20241202
  Receipt Date: 20241202
  Transmission Date: 20250115
  Serious: Yes (Hospitalization)
  Sender: MEITHEAL PHARMACEUTICALS
  Company Number: MA-MEITHEAL-2024MPLIT00402

PATIENT
  Age: 65 Year
  Sex: Male

DRUGS (2)
  1. NOREPINEPHRINE [Suspect]
     Active Substance: NOREPINEPHRINE\NOREPINEPHRINE BITARTRATE
     Indication: Tachycardia
     Route: 065
  2. Immunoglobulin [Concomitant]
     Indication: Product used for unknown indication
     Dosage: OVER THE COURSE OF 5 DAYS
     Route: 042

REACTIONS (1)
  - Stress cardiomyopathy [Recovering/Resolving]
